FAERS Safety Report 6273329-2 (Version None)
Quarter: 2009Q3

REPORT INFORMATION
  Report Type: 
  Country: None (occurrence: None)
  Receive Date: 20090715
  Receipt Date: 20090703
  Transmission Date: 20100115
  Serious: Yes (Other)
  Sender: FDA-Public Use
  Company Number: 8048818

PATIENT
  Age: 34 Year

DRUGS (4)
  1. KEPPRA [Suspect]
     Dosage: 2 G 1/2D, PO
     Route: 048
     Dates: start: 20080101
  2. FENITOINA [Suspect]
     Dosage: 300 MG 2/W
  3. TEMODAL [Suspect]
     Indication: MALIGNANT GLIOMA
     Dosage: 480 MG, PO
     Route: 048
     Dates: start: 20080327, end: 20090305
  4. RIVOTRIL [Concomitant]

REACTIONS (1)
  - PANCYTOPENIA [None]
